FAERS Safety Report 14491416 (Version 2)
Quarter: 2018Q1

REPORT INFORMATION
  Report Type: Report from Study
  Country: DE (occurrence: DE)
  Receive Date: 20180206
  Receipt Date: 20180320
  Transmission Date: 20180509
  Serious: Yes (Other)
  Sender: FDA-Public Use
  Company Number: DE-VIIV HEALTHCARE LIMITED-DE2018GSK018196

PATIENT
  Age: 48 Year
  Sex: Male

DRUGS (1)
  1. ABACAVIRSULPHATE+DOLUTEGRAVIR+LAMIVUDINE [Suspect]
     Active Substance: ABACAVIR SULFATE\DOLUTEGRAVIR SODIUM\LAMIVUDINE
     Indication: HIV INFECTION
     Dosage: 1 DF, QD
     Route: 048
     Dates: start: 20150511, end: 20170718

REACTIONS (1)
  - Chronic kidney disease [Recovered/Resolved]

NARRATIVE: CASE EVENT DATE: 20150520
